FAERS Safety Report 17814200 (Version 1)
Quarter: 2020Q2

REPORT INFORMATION
  Report Type: Spontaneous
  Country: BE (occurrence: BE)
  Receive Date: 20200522
  Receipt Date: 20200522
  Transmission Date: 20200714
  Serious: No
  Sender: FDA-Public Use
  Company Number: BE-TOLMAR, INC.-19BE000217

PATIENT
  Age: 84 Year
  Sex: Male

DRUGS (1)
  1. ELIGARD [Suspect]
     Active Substance: LEUPROLIDE ACETATE
     Indication: PRODUCT USED FOR UNKNOWN INDICATION
     Dosage: 45 MILLIGRAM EVERY SIX MONTHS
     Route: 065

REACTIONS (2)
  - Product quality issue [None]
  - Intercepted product preparation error [None]

NARRATIVE: CASE EVENT DATE: 20190723
